FAERS Safety Report 7734150-9 (Version None)
Quarter: 2011Q3

REPORT INFORMATION
  Report Type: 
  Country: None (occurrence: None)
  Receive Date: 20110907
  Receipt Date: 20101222
  Transmission Date: 20111222
  Serious: No
  Sender: FDA-Public Use
  Company Number: US-MUTUAL PHARMACEUTICAL COMPANY, INC.-2010P1003246

PATIENT
  Sex: Female
  Weight: 58.97 kg

DRUGS (3)
  1. UNSPECIFIED BIRTH CONTROL PILLS [Concomitant]
  2. MULTI-VITAMIN [Concomitant]
  3. SULFAMETHOXAZOLE AND TRIMETHOPRIM [Suspect]
     Indication: SINUSITIS
     Route: 048
     Dates: start: 20101202, end: 20101212

REACTIONS (5)
  - PRURITUS GENERALISED [None]
  - SWOLLEN TONGUE [None]
  - FLATULENCE [None]
  - RASH GENERALISED [None]
  - DIARRHOEA [None]
